FAERS Safety Report 15554902 (Version 1)
Quarter: 2018Q4

REPORT INFORMATION
  Report Type: Spontaneous
  Country: US (occurrence: US)
  Receive Date: 20181022
  Receipt Date: 20181022
  Transmission Date: 20190205
  Serious: No
  Sender: FDA-Public Use
  Company Number: None

PATIENT
  Age: 74 Year
  Sex: Female

DRUGS (1)
  1. MEKINIST [Suspect]
     Active Substance: TRAMETINIB DIMETHYL SULFOXIDE
     Indication: MALIGNANT MELANOMA
     Route: 048
     Dates: start: 20180830

REACTIONS (5)
  - Myalgia [None]
  - Chest discomfort [None]
  - Peripheral swelling [None]
  - Cough [None]
  - Pain in extremity [None]

NARRATIVE: CASE EVENT DATE: 20181012
